FAERS Safety Report 8882233 (Version 7)
Quarter: 2013Q4

REPORT INFORMATION
  Report Type: Report from Study
  Country: JP (occurrence: JP)
  Receive Date: 20121102
  Receipt Date: 20131025
  Transmission Date: 20140711
  Serious: Yes (Hospitalization)
  Sender: FDA-Public Use
  Company Number: JP-VERTEX PHARMACEUTICAL INC.-2012-023938

PATIENT
  Age: 63 Year
  Sex: Male

DRUGS (10)
  1. VX-950 (TELAPREVIR) [Suspect]
     Indication: CHRONIC HEPATITIS C
     Dosage: 1500 MG, QD
     Route: 048
     Dates: start: 20120904, end: 20121203
  2. RIBAVIRIN [Concomitant]
     Dosage: 800 MG, QD
     Route: 048
     Dates: start: 20120904, end: 20121001
  3. RIBAVIRIN [Concomitant]
     Dosage: 600 MG, QD
     Route: 048
     Dates: start: 20121002, end: 20121008
  4. RIBAVIRIN [Concomitant]
     Dosage: 400 MG, QD
     Route: 048
     Dates: start: 20121009
  5. PEGINTERFERON ALFA-2B [Concomitant]
     Dosage: 100 ?G/KG, QW
     Route: 058
     Dates: start: 20120904, end: 20121001
  6. PEGINTERFERON ALFA-2B [Concomitant]
     Dosage: 60 ?G/KG, QW
     Route: 058
     Dates: start: 20121002
  7. PARIET [Concomitant]
     Dosage: 10 MG, QD
     Route: 048
     Dates: start: 20120905
  8. ZYLORIC [Concomitant]
     Dosage: 200 MG, QD
     Route: 048
  9. UREPEARL [Concomitant]
     Dosage: UNK, PRN
     Route: 061
     Dates: start: 20121002
  10. RINDERON VG [Concomitant]
     Dosage: UNK, PRN
     Route: 061
     Dates: start: 20121002

REACTIONS (1)
  - Drug eruption [Recovered/Resolved]
